FAERS Safety Report 7200195-0 (Version None)
Quarter: 2010Q4

REPORT INFORMATION
  Report Type: 
  Country: None (occurrence: None)
  Receive Date: 20101228
  Receipt Date: 20101216
  Transmission Date: 20110411
  Serious: Yes (Other)
  Sender: FDA-Public Use
  Company Number: FR-PFIZER INC-2010160146

PATIENT
  Age: 36 Year
  Sex: Female
  Weight: 86 kg

DRUGS (5)
  1. LYRICA [Suspect]
     Indication: NEURALGIA
     Dosage: 50 MG, 1X/DAY IN THE EVENING
     Route: 048
     Dates: start: 20101122, end: 20101129
  2. HUMIRA [Concomitant]
     Indication: ANKYLOSING SPONDYLITIS
     Dosage: UNK
     Route: 058
     Dates: start: 20090824
  3. ARCOXIA [Concomitant]
     Indication: ANKYLOSING SPONDYLITIS
     Dosage: 60 UNK, 1X/DAY
     Route: 048
     Dates: start: 20101025
  4. DAFALGAN CODEINE [Concomitant]
     Indication: PAIN
     Dosage: 6 INTAKES PER DAY
     Route: 048
     Dates: start: 20101025
  5. ESOMEPRAZOLE [Concomitant]
     Indication: GASTRIC ULCER
     Dosage: 20 UNK, 1X/DAY
     Route: 048
     Dates: start: 20090924

REACTIONS (5)
  - HYPERSENSITIVITY [None]
  - PALATAL OEDEMA [None]
  - RASH [None]
  - RESPIRATORY DISORDER [None]
  - SPEECH DISORDER [None]
